FAERS Safety Report 4370152-0 (Version None)
Quarter: 2004Q2

REPORT INFORMATION
  Report Type: 
  Country: None (occurrence: None)
  Receive Date: 20040603
  Receipt Date: 20040423
  Transmission Date: 20050107
  Serious: No
  Sender: FDA-Public Use
  Company Number: US-BRISTOL-MYERS SQUIBB COMPANY-12570461

PATIENT
  Age: 39 Year
  Sex: Male
  Weight: 88 kg

DRUGS (5)
  1. ABILIFY [Suspect]
     Indication: PSYCHOTIC DISORDER
     Route: 048
  2. EFFEXOR [Concomitant]
  3. XANAX [Concomitant]
  4. LOMOTIL [Concomitant]
  5. COZAAR [Concomitant]

REACTIONS (1)
  - MUSCLE TWITCHING [None]
